FAERS Safety Report 5406944-6 (Version None)
Quarter: 2007Q3

REPORT INFORMATION
  Report Type: 
  Country: None (occurrence: None)
  Receive Date: 20070803
  Receipt Date: 20070803
  Transmission Date: 20080115
  Serious: Yes (Death)
  Sender: FDA-Public Use
  Company Number: None

PATIENT
  Age: 78 Year
  Sex: Female
  Weight: 59.7 kg

DRUGS (1)
  1. CAPECITABINE 1000MG/M2 ROCHE LABORATORIES [Suspect]
     Indication: ADENOCARCINOMA PANCREAS
     Dosage: 1600MG TWICE DAILY PO
     Route: 048
     Dates: start: 20070620, end: 20070701

REACTIONS (4)
  - ADENOCARCINOMA PANCREAS [None]
  - MALIGNANT NEOPLASM PROGRESSION [None]
  - NAUSEA [None]
  - VOMITING [None]
